FAERS Safety Report 17902104 (Version 1)
Quarter: 2020Q2

REPORT INFORMATION
  Report Type: Report from Study
  Country: US (occurrence: US)
  Receive Date: 20200616
  Receipt Date: 20200616
  Transmission Date: 20200714
  Serious: Yes (Hospitalization)
  Sender: FDA-Public Use
  Company Number: US-PFIZER INC-2020044393

PATIENT
  Age: 47 Year
  Sex: Female
  Weight: 110.4 kg

DRUGS (7)
  1. PALBOCICLIB [Suspect]
     Active Substance: PALBOCICLIB
     Indication: ADENOCARCINOMA OF COLON
     Dosage: 100 MG, ONCE DAILY, CYCLE 2
     Route: 048
     Dates: start: 20200102
  2. NORCO [Concomitant]
     Active Substance: ACETAMINOPHEN\HYDROCODONE BITARTRATE
     Indication: PAIN
     Dosage: EVERY 6 HOURS
     Route: 048
     Dates: start: 20191105, end: 20191204
  3. IMODIUM [Concomitant]
     Active Substance: LOPERAMIDE HYDROCHLORIDE
     Indication: DIARRHOEA
     Dosage: 100 MG, PRN Q4H
     Route: 048
     Dates: start: 20190110
  4. MORPHINE [Concomitant]
     Active Substance: MORPHINE
     Indication: PAIN
     Dosage: 20 MG, 24 HR BD
     Route: 048
     Dates: start: 20191105
  5. TYLENOL [Concomitant]
     Active Substance: ACETAMINOPHEN
     Indication: PAIN
     Dosage: 500 MG, PRN Q6H
     Route: 048
     Dates: start: 20190920
  6. BINIMETINIB [Suspect]
     Active Substance: BINIMETINIB
     Indication: ADENOCARCINOMA OF COLON
     Dosage: 30 MG, TWICE DAILY CYCLE 1
     Route: 048
     Dates: start: 20191205
  7. NORCO [Concomitant]
     Active Substance: ACETAMINOPHEN\HYDROCODONE BITARTRATE
     Dosage: EVERY 4 HOURS
     Route: 048
     Dates: start: 20191205

REACTIONS (2)
  - Pyrexia [Unknown]
  - Fatigue [Unknown]

NARRATIVE: CASE EVENT DATE: 20200118
